FAERS Safety Report 5938710-7 (Version None)
Quarter: 2008Q4

REPORT INFORMATION
  Report Type: 
  Country: None (occurrence: None)
  Receive Date: 20081103
  Receipt Date: 20081022
  Transmission Date: 20090506
  Serious: Yes (Hospitalization, Other)
  Sender: FDA-Public Use
  Company Number: FR-ROCHE-562636

PATIENT
  Sex: Male
  Weight: 78 kg

DRUGS (9)
  1. PEGASYS [Suspect]
     Indication: HEPATITIS C
     Dosage: FORM: INJECTABLE SOLUTION
     Route: 058
     Dates: start: 20080401
  2. COPEGUS [Suspect]
     Indication: HEPATITIS C
     Route: 048
     Dates: start: 20080324
  3. HUMALOG [Concomitant]
     Route: 058
     Dates: start: 19940101
  4. CELECTOL [Concomitant]
     Dosage: DRUG NAME REPORTED AS: CELECTOL 200. DOSAGE REGIMEN: CELECTOL 200 AT ONE DOSE.
  5. CORVASAL [Concomitant]
     Dosage: DOSAGE REGIMEN: 3 DOSES PER DAY.
  6. KARDEGIC [Concomitant]
     Dosage: DRUG REPORTED AS: KARDEGIC 160 DOSAGE REGIMEN: 160 PER OS AT ONE DOSE IN THE EVENING.
     Route: 048
  7. 1 CONCOMITANT DRUG [Concomitant]
     Dosage: DRUG REPORTED AS: NTI PATCH
  8. TRIATEC [Concomitant]
     Indication: HYPERTENSION
     Dosage: DOSAGE REGIMEN: HALF IN THE MORNING AND ONE IN THE EVENING.
     Route: 048
  9. PANTOPRAZOLE SODIUM [Concomitant]
     Route: 048

REACTIONS (5)
  - ANAEMIA [None]
  - LEUKOPENIA [None]
  - MYOCARDIAL INFARCTION [None]
  - SERUM FERRITIN INCREASED [None]
  - THROMBOCYTOPENIA [None]
